FAERS Safety Report 12905055 (Version 3)
Quarter: 2017Q1

REPORT INFORMATION
  Report Type: Report from Study
  Country: US (occurrence: US)
  Receive Date: 20161102
  Receipt Date: 20170302
  Transmission Date: 20170428
  Serious: Yes (Hospitalization, Other)
  Sender: FDA-Public Use
  Company Number: US-SAOL THERAPEUTICS-2016SAO00972

PATIENT
  Age: 26 Year
  Sex: Male

DRUGS (6)
  1. COMPOUNDED BACLOFEN [Suspect]
     Active Substance: BACLOFEN
     Dosage: 69.13 ?G, \DAY
     Route: 037
     Dates: start: 20160728, end: 20160817
  2. BUPIVACAINE. [Suspect]
     Active Substance: BUPIVACAINE
     Dosage: 20.74 MG, \DAY
     Route: 037
     Dates: start: 20160728, end: 20160817
  3. COMPOUNDED BACLOFEN [Suspect]
     Active Substance: BACLOFEN
     Dosage: 39.98 ?G, \DAY
     Route: 037
     Dates: start: 20160609, end: 20160728
  4. CLONIDINE. [Suspect]
     Active Substance: CLONIDINE
     Dosage: 99.94 ?G, \DAY
     Route: 037
     Dates: start: 20160609, end: 20160728
  5. CLONIDINE. [Suspect]
     Active Substance: CLONIDINE
     Dosage: 172.84 ?G, \DAY
     Route: 037
     Dates: start: 20160728, end: 20160817
  6. BUPIVACAINE. [Suspect]
     Active Substance: BUPIVACAINE
     Dosage: 11.993 MG, \DAY
     Route: 037
     Dates: start: 20160609, end: 20160728

REACTIONS (10)
  - Implant site pain [Recovered/Resolved]
  - Implant site fibrosis [None]
  - Implant site extravasation [Recovering/Resolving]
  - Implant site swelling [Not Recovered/Not Resolved]
  - Cerebrospinal fluid leakage [Not Recovered/Not Resolved]
  - Post lumbar puncture syndrome [Recovered/Resolved]
  - Implant site erythema [Not Recovered/Not Resolved]
  - Implant site warmth [Not Recovered/Not Resolved]
  - Wound complication [Not Recovered/Not Resolved]
  - Implant site inflammation [Not Recovered/Not Resolved]

NARRATIVE: CASE EVENT DATE: 20160728
